FAERS Safety Report 5087503-4 (Version None)
Quarter: 2006Q3

REPORT INFORMATION
  Report Type: 
  Country: None (occurrence: None)
  Receive Date: 20060727
  Receipt Date: 20060502
  Transmission Date: 20061208
  Serious: Yes (Other)
  Sender: FDA-Public Use
  Company Number: 2006059139

PATIENT
  Age: 58 Year
  Sex: Female

DRUGS (11)
  1. LYRICA [Suspect]
     Indication: NEURALGIA
     Dosage: 300 MG (150 MG, 2 IN 1 D), ORAL
     Route: 048
     Dates: start: 20050101
  2. SYNTHROID [Concomitant]
  3. LASIX [Concomitant]
  4. CYTOMEL [Concomitant]
  5. CAPTOPRIL [Concomitant]
  6. TOPROL-XL [Concomitant]
  7. POTASSIUM [Concomitant]
  8. GLUCOPHAGE [Concomitant]
  9. LANTUS [Concomitant]
  10. TOPAMAX [Concomitant]
  11. CATAPRES [Concomitant]

REACTIONS (6)
  - BALANCE DISORDER [None]
  - DRUG INEFFECTIVE [None]
  - FEELING ABNORMAL [None]
  - GAIT DISTURBANCE [None]
  - TREMOR [None]
  - VISUAL DISTURBANCE [None]
